FAERS Safety Report 4282922-8 (Version None)
Quarter: 2004Q1

REPORT INFORMATION
  Report Type: 
  Country: None (occurrence: None)
  Receive Date: 20040130
  Receipt Date: 20031119
  Transmission Date: 20041129
  Serious: No
  Sender: FDA-Public Use
  Company Number: US-BRISTOL-MYERS SQUIBB COMPANY-12439170

PATIENT
  Sex: Female

DRUGS (2)
  1. SERZONE [Suspect]
  2. AVONEX [Concomitant]

REACTIONS (1)
  - VISUAL DISTURBANCE [None]
